FAERS Safety Report 6294982-3 (Version None)
Quarter: 2009Q3

REPORT INFORMATION
  Report Type: 
  Country: None (occurrence: None)
  Receive Date: 20090803
  Receipt Date: 20090715
  Transmission Date: 20100115
  Serious: Yes (Hospitalization)
  Sender: FDA-Public Use
  Company Number: AU-MERCK-0907USA02107

PATIENT
  Sex: Male
  Weight: 84 kg

DRUGS (4)
  1. ZOCOR [Suspect]
     Indication: ARRHYTHMIA
     Route: 048
     Dates: start: 20070718, end: 20080506
  2. CORDARONE [Suspect]
     Indication: ARRHYTHMIA
     Route: 065
     Dates: start: 20070715
  3. COUMADIN [Suspect]
     Indication: METABOLIC DISORDER
     Route: 065
     Dates: start: 20070715
  4. ASPIRIN [Concomitant]
     Indication: MYOCARDIAL ISCHAEMIA
     Route: 065
     Dates: start: 20080410

REACTIONS (7)
  - ALANINE AMINOTRANSFERASE INCREASED [None]
  - BLOOD ALKALINE PHOSPHATASE DECREASED [None]
  - BLOOD CREATINE PHOSPHOKINASE INCREASED [None]
  - GAMMA-GLUTAMYLTRANSFERASE INCREASED [None]
  - HEPATIC FUNCTION ABNORMAL [None]
  - MYALGIA [None]
  - RHABDOMYOLYSIS [None]
